FAERS Safety Report 11840480 (Version 1)
Quarter: 2015Q4

REPORT INFORMATION
  Report Type: Spontaneous
  Country: US (occurrence: US)
  Receive Date: 20151216
  Receipt Date: 20151216
  Transmission Date: 20160305
  Serious: No
  Sender: FDA-Public Use
  Company Number: US-TEVA-604987USA

PATIENT
  Sex: Female

DRUGS (2)
  1. KADIAN [Suspect]
     Active Substance: MORPHINE SULFATE
     Route: 065
  2. NALTREXONE [Suspect]
     Active Substance: NALTREXONE
     Route: 065

REACTIONS (3)
  - Headache [Unknown]
  - Nausea [Unknown]
  - Abdominal pain upper [Unknown]
